FAERS Safety Report 5678777-7 (Version None)
Quarter: 2008Q1

REPORT INFORMATION
  Report Type: 
  Country: None (occurrence: None)
  Receive Date: 20080324
  Receipt Date: 20080324
  Transmission Date: 20080703
  Serious: Yes (Other)
  Sender: FDA-Public Use
  Company Number: None

PATIENT
  Age: 21 Year
  Sex: Male
  Weight: 81.6475 kg

DRUGS (2)
  1. SONATA [Suspect]
     Indication: INSOMNIA
     Dosage: 10 MG SID PO
     Route: 048
     Dates: start: 20080318, end: 20080318
  2. ZOLOFT [Concomitant]

REACTIONS (3)
  - AMNESIA [None]
  - HALLUCINATION [None]
  - LOSS OF CONSCIOUSNESS [None]
